FAERS Safety Report 12784277 (Version 1)
Quarter: 2016Q3

REPORT INFORMATION
  Report Type: Spontaneous
  Country: US (occurrence: US)
  Receive Date: 20160927
  Receipt Date: 20160927
  Transmission Date: 20161109
  Serious: No
  Sender: FDA-Public Use
  Company Number: FR-ASTRAZENECA-2016SF01971

PATIENT
  Sex: Female

DRUGS (1)
  1. SYMBICORT [Suspect]
     Active Substance: BUDESONIDE\FORMOTEROL FUMARATE DIHYDRATE
     Dosage: 4.5/160 MICROGRAMS, ONE PUFF AT NIGHT
     Route: 055

REACTIONS (3)
  - Feeling abnormal [Unknown]
  - Device malfunction [Unknown]
  - Product taste abnormal [Unknown]
